FAERS Safety Report 9403661 (Version 1)
Quarter: 2013Q3

REPORT INFORMATION
  Report Type: Spontaneous
  Country: GB (occurrence: GB)
  Receive Date: 20130717
  Receipt Date: 20130717
  Transmission Date: 20140515
  Serious: Yes (Hospitalization)
  Sender: FDA-Public Use
  Company Number: GB-ROCHE-1249721

PATIENT
  Age: 70 Year
  Sex: Female

DRUGS (3)
  1. TOCILIZUMAB [Suspect]
     Indication: RHEUMATOID ARTHRITIS
     Route: 065
  2. LISINOPRIL [Concomitant]
  3. SINEMET [Concomitant]

REACTIONS (1)
  - Pancreatitis acute [Recovered/Resolved]
